FAERS Safety Report 17316788 (Version 1)
Quarter: 2020Q1

REPORT INFORMATION
  Report Type: Spontaneous
  Country: US (occurrence: US)
  Receive Date: 20200124
  Receipt Date: 20200124
  Transmission Date: 20200409
  Serious: No
  Sender: FDA-Public Use
  Company Number: US-PERRIGO-19US004173

PATIENT
  Age: 1 Year
  Sex: Male
  Weight: 15.87 kg

DRUGS (2)
  1. IBUPROFEN. [Suspect]
     Active Substance: IBUPROFEN
     Indication: NASOPHARYNGITIS
     Dosage: 80 MG, SINGLE
     Route: 048
     Dates: start: 20190329, end: 20190329
  2. IBUPROFEN. [Suspect]
     Active Substance: IBUPROFEN
     Indication: RHINORRHOEA

REACTIONS (3)
  - Expired product administered [Recovered/Resolved]
  - Drug administered in wrong device [Recovered/Resolved]
  - Off label use [Recovered/Resolved]

NARRATIVE: CASE EVENT DATE: 20190329
